FAERS Safety Report 7406402-3 (Version None)
Quarter: 2011Q2

REPORT INFORMATION
  Report Type: 
  Country: None (occurrence: None)
  Receive Date: 20110411
  Receipt Date: 20110309
  Transmission Date: 20111010
  Serious: Yes (Hospitalization, Other)
  Sender: FDA-Public Use
  Company Number: US-BAYER-201018864NA

PATIENT
  Age: 52 Year
  Sex: Female
  Weight: 48.98 kg

DRUGS (9)
  1. ZOFRAN [Concomitant]
     Indication: NAUSEA
     Dosage: UNK
     Dates: start: 20080527
  2. ZOFRAN [Concomitant]
     Indication: VOMITING
  3. TYLENOL (CAPLET) [Concomitant]
     Indication: PAIN
     Dosage: UNK
     Dates: start: 20080527
  4. DARVOCET-N 50 [Concomitant]
     Indication: PAIN
     Dosage: UNK
     Dates: start: 20080527
  5. AMBIEN [Concomitant]
     Dosage: UNK
     Dates: start: 20080527
  6. PHENTERMINE [Concomitant]
     Dosage: UNK
     Dates: start: 19990101, end: 20080501
  7. YASMIN [Suspect]
     Indication: PRODUCT USED FOR UNKNOWN INDICATION
     Dosage: UNK UNK, UNK
     Route: 048
     Dates: start: 20040201, end: 20080101
  8. KLOR-CON [Concomitant]
     Dosage: UNK
     Route: 048
     Dates: start: 20080528
  9. THYROID [Concomitant]

REACTIONS (6)
  - HEMIANOPIA HOMONYMOUS [None]
  - PARALYSIS [None]
  - NEGLECT OF PERSONAL APPEARANCE [None]
  - CEREBROVASCULAR ACCIDENT [None]
  - HEMIPARESIS [None]
  - HEMIPLEGIA [None]
